FAERS Safety Report 6408210-9 (Version None)
Quarter: 2009Q4

REPORT INFORMATION
  Report Type: 
  Country: None (occurrence: None)
  Receive Date: 20091019
  Receipt Date: 20091011
  Transmission Date: 20100525
  Serious: Yes (Other)
  Sender: FDA-Public Use
  Company Number: 1000009405

PATIENT
  Age: 63 Year
  Sex: Male

DRUGS (2)
  1. BYSTOLIC [Suspect]
     Dosage: 5 MG (5 MG, 1 IN 1 D) ,ORAL; 10 MG (10 MG, 1 IN 1 D),ORAL
     Route: 048
     Dates: start: 20090601, end: 20091001
  2. BYSTOLIC [Suspect]
     Dosage: 5 MG (5 MG, 1 IN 1 D) ,ORAL; 10 MG (10 MG, 1 IN 1 D),ORAL
     Route: 048
     Dates: start: 20091001

REACTIONS (3)
  - BLOOD PRESSURE INCREASED [None]
  - DYSPEPSIA [None]
  - MUSCULOSKELETAL PAIN [None]
